FAERS Safety Report 8408769-6 (Version None)
Quarter: 2012Q2

REPORT INFORMATION
  Report Type: 
  Country: None (occurrence: None)
  Receive Date: 20120604
  Receipt Date: 20120521
  Transmission Date: 20120825
  Serious: Yes (Congenital Anomaly)
  Sender: FDA-Public Use
  Company Number: US-ELI_LILLY_AND_COMPANY-US201205007617

PATIENT

DRUGS (2)
  1. PROZAC [Suspect]
     Dosage: UNK, UNKNOWN
  2. PROZAC [Suspect]
     Dosage: UNK, UNKNOWN

REACTIONS (6)
  - ADVERSE EVENT [None]
  - PULMONARY VALVE STENOSIS CONGENITAL [None]
  - HYPOPLASTIC RIGHT HEART SYNDROME [None]
  - AORTIC VALVE ATRESIA [None]
  - FOETAL EXPOSURE DURING PREGNANCY [None]
  - MATERNAL DRUGS AFFECTING FOETUS [None]
